FAERS Safety Report 5897080-3 (Version None)
Quarter: 2008Q3

REPORT INFORMATION
  Report Type: 
  Country: None (occurrence: None)
  Receive Date: 20080923
  Receipt Date: 20080910
  Transmission Date: 20090109
  Serious: Yes (Other)
  Sender: FDA-Public Use
  Company Number: 08-470

PATIENT
  Age: 60 Year
  Sex: Male
  Weight: 136.0791 kg

DRUGS (5)
  1. ALEVE [Suspect]
     Indication: PAIN
     Dosage: 220 MG, DAILY, ORAL
     Route: 048
     Dates: end: 20080903
  2. RITE AID BRAND ASPIRIN [Concomitant]
  3. GNC VITAMINS [Concomitant]
  4. TRIAMTERENE [Concomitant]
  5. SIMVASTATIN [Concomitant]

REACTIONS (2)
  - DEAFNESS TRANSITORY [None]
  - DEAFNESS UNILATERAL [None]
